FAERS Safety Report 8380963-2 (Version None)
Quarter: 2012Q2

REPORT INFORMATION
  Report Type: 
  Country: None (occurrence: None)
  Receive Date: 20120523
  Receipt Date: 20120515
  Transmission Date: 20120825
  Serious: Yes (Other)
  Sender: FDA-Public Use
  Company Number: JP-VERTEX PHARMACEUTICALS INC.-AE-2012-004521

PATIENT
  Age: 50 Year
  Sex: Male

DRUGS (9)
  1. PEGINTERFERON ALFA-2A [Concomitant]
     Indication: HEPATITIS C
     Route: 051
     Dates: start: 20120207, end: 20120220
  2. FEBURIC [Concomitant]
     Route: 048
  3. TELAVIC (TELAPREVIR) [Suspect]
     Indication: HEPATITIS C
     Route: 048
     Dates: start: 20120207
  4. RIBAVIRIN [Concomitant]
     Route: 048
     Dates: start: 20120221
  5. RIBAVIRIN [Concomitant]
     Route: 048
     Dates: start: 20120320
  6. RIBAVIRIN [Concomitant]
     Route: 048
     Dates: start: 20120327
  7. PEGINTERFERON ALFA-2A [Concomitant]
     Route: 051
     Dates: start: 20120221
  8. RIBAVIRIN [Concomitant]
     Indication: HEPATITIS C
     Route: 048
     Dates: start: 20120207, end: 20120220
  9. MICARDIS [Concomitant]
     Route: 048

REACTIONS (1)
  - NEUTROPHIL COUNT DECREASED [None]
